FAERS Safety Report 4588107-X (Version None)
Quarter: 2005Q1

REPORT INFORMATION
  Report Type: 
  Country: None (occurrence: None)
  Receive Date: 20050216
  Receipt Date: 20050202
  Transmission Date: 20050727
  Serious: Yes (Other)
  Sender: FDA-Public Use
  Company Number: GBS050216550

PATIENT
  Age: 66 Year
  Weight: 72 kg

DRUGS (5)
  1. YENTERE                     (DULOXETINE HYDROCHLORIDE) [Suspect]
     Indication: STRESS INCONTINENCE
     Dosage: 40 MG/2 DAY
     Dates: start: 20050118, end: 20050119
  2. CO-TENIDONE [Concomitant]
  3. DOXAZOSIN [Concomitant]
  4. LANSOPRAZOLE [Concomitant]
  5. MEBEVERINE [Concomitant]

REACTIONS (4)
  - ASTHENIA [None]
  - CIRCULATORY COLLAPSE [None]
  - DIZZINESS [None]
  - GASTROINTESTINAL DISORDER [None]
